FAERS Safety Report 6558442-4 (Version None)
Quarter: 2010Q1

REPORT INFORMATION
  Report Type: 
  Country: None (occurrence: None)
  Receive Date: 20100129
  Receipt Date: 20100120
  Transmission Date: 20100710
  Serious: Yes (Hospitalization, Other)
  Sender: FDA-Public Use
  Company Number: US-JNJFOC-20100109419

PATIENT
  Weight: 174.64 kg

DRUGS (1)
  1. TOPIRAMATE [Suspect]
     Indication: WEIGHT DECREASED
     Route: 048

REACTIONS (7)
  - DECREASED APPETITE [None]
  - DEHYDRATION [None]
  - HYPERSOMNIA [None]
  - HYPOTENSION [None]
  - RENAL FAILURE ACUTE [None]
  - STAPHYLOCOCCAL SEPSIS [None]
  - THERAPEUTIC RESPONSE UNEXPECTED [None]
